FAERS Safety Report 7061074-5 (Version None)
Quarter: 2010Q4

REPORT INFORMATION
  Report Type: 
  Country: None (occurrence: None)
  Receive Date: 20101026
  Receipt Date: 20101018
  Transmission Date: 20110411
  Serious: Yes (Hospitalization, Other)
  Sender: FDA-Public Use
  Company Number: US-PFIZER INC-2010106854

PATIENT
  Sex: Female
  Weight: 113.38 kg

DRUGS (7)
  1. GEODON [Suspect]
     Indication: ANXIETY
     Dosage: 40 MG, 2X/DAY
     Route: 048
     Dates: start: 20100701
  2. GEODON [Suspect]
     Indication: PARANOIA
  3. RISPERIDONE [Suspect]
     Indication: ANXIETY
     Dosage: UNK
     Dates: end: 20100701
  4. RISPERIDONE [Suspect]
     Indication: PARANOIA
  5. PALIPERIDONE [Suspect]
     Indication: ANXIETY
     Dosage: UNK
     Route: 048
     Dates: end: 20100701
  6. PALIPERIDONE [Suspect]
     Indication: PARANOIA
  7. CELEXA [Concomitant]
     Indication: DEPRESSION
     Dosage: 40 MG, 1X/DAY
     Route: 048

REACTIONS (5)
  - ABDOMINAL DISCOMFORT [None]
  - ASTHENIA [None]
  - HYPERHIDROSIS [None]
  - TREMOR [None]
  - WEIGHT INCREASED [None]
